FAERS Safety Report 16517434 (Version 2)
Quarter: 2019Q3

REPORT INFORMATION
  Report Type: Report from Study
  Country: DE (occurrence: DE)
  Receive Date: 20190702
  Receipt Date: 20190710
  Transmission Date: 20191004
  Serious: Yes (Life-Threatening, Hospitalization, Other)
  Sender: FDA-Public Use
  Company Number: DE-BRISTOL-MYERS SQUIBB COMPANY-BMS-2019-062961

PATIENT
  Age: 65 Year
  Sex: Female

DRUGS (9)
  1. GEMCITABINE HYDROCHLORIDE. [Suspect]
     Active Substance: GEMCITABINE HYDROCHLORIDE
     Indication: B-CELL LYMPHOMA
     Dosage: 1420 MILLIGRAM
     Route: 042
     Dates: start: 20190608
  2. FOLSAN [Concomitant]
     Active Substance: FOLIC ACID
     Indication: PROPHYLAXIS
     Dosage: 5 MILLIGRAM, QD
     Route: 048
     Dates: start: 20190606
  3. PANTOZOL [Concomitant]
     Active Substance: PANTOPRAZOLE SODIUM
     Indication: PROPHYLAXIS
     Dosage: 40 MILLIGRAM, BID
     Route: 048
     Dates: start: 20190604
  4. RITUXIMAB. [Suspect]
     Active Substance: RITUXIMAB
     Indication: B-CELL LYMPHOMA
     Dosage: 532.5 MILLIGRAM
     Route: 042
     Dates: start: 20190607, end: 20190624
  5. PEGFILGRASTIM [Suspect]
     Active Substance: PEGFILGRASTIM
     Indication: B-CELL LYMPHOMA
     Dosage: 6 MILLIGRAM
     Route: 058
     Dates: start: 20190611, end: 20190629
  6. DEKRISTOL [Concomitant]
     Active Substance: CHOLECALCIFEROL
     Indication: PROPHYLAXIS
     Dosage: 20000 INTERNATIONAL UNIT, QWK
     Route: 048
     Dates: start: 20190624
  7. OXALIPLATIN. [Suspect]
     Active Substance: OXALIPLATIN
     Indication: B-CELL LYMPHOMA
     Dosage: 142 MILLIGRAM
     Route: 042
     Dates: start: 20190608, end: 20190624
  8. COTRIMAXAZOL [Concomitant]
     Indication: PROPHYLAXIS
     Dosage: 960 MILLIGRAM, BID (MO AND DO)
     Route: 048
     Dates: start: 20190610
  9. ACICLOVIR [Concomitant]
     Active Substance: ACYCLOVIR
     Indication: PROPHYLAXIS
     Dosage: 400 MILLIGRAM, BID
     Route: 048
     Dates: start: 20190607

REACTIONS (2)
  - Gastric perforation [Recovering/Resolving]
  - Intestinal haemorrhage [Recovering/Resolving]

NARRATIVE: CASE EVENT DATE: 20190701
